FAERS Safety Report 9511261 (Version 2)
Quarter: 2013Q4

REPORT INFORMATION
  Report Type: Spontaneous
  Country: US (occurrence: None)
  Receive Date: 20130906
  Receipt Date: 20131107
  Transmission Date: 20140711
  Serious: Yes (Hospitalization)
  Sender: FDA-Public Use
  Company Number: DSU-2013-04407

PATIENT
  Sex: Female

DRUGS (1)
  1. BENICAR HCT [Suspect]
     Indication: HYPERTENSION
     Dosage: UNKNOWN, PER ORAL
     Route: 048
     Dates: start: 1993, end: 2011

REACTIONS (7)
  - Electrolyte imbalance [None]
  - Dehydration [None]
  - Vomiting [None]
  - Diarrhoea [None]
  - Malabsorption [None]
  - Weight decreased [None]
  - Coeliac disease [None]
